FAERS Safety Report 11206069 (Version 1)
Quarter: 2015Q2

REPORT INFORMATION
  Report Type: Spontaneous
  Country: US (occurrence: None)
  Receive Date: 20150619
  Receipt Date: 20150619
  Transmission Date: 20150821
  Serious: No
  Sender: FDA-Public Use
  Company Number: None

PATIENT
  Age: 27 Year
  Sex: Male
  Weight: 94.8 kg

DRUGS (1)
  1. ARIPIPRAZOLE 10 MG [Suspect]
     Active Substance: ARIPIPRAZOLE
     Route: 048
     Dates: start: 20150601, end: 20150616

REACTIONS (2)
  - Agitation [None]
  - Insomnia [None]

NARRATIVE: CASE EVENT DATE: 20150616
